FAERS Safety Report 19808106 (Version 1)
Quarter: 2021Q3

REPORT INFORMATION
  Report Type: Spontaneous
  Country: JP (occurrence: JP)
  Receive Date: 20210909
  Receipt Date: 20210909
  Transmission Date: 20211014
  Serious: Yes (Other)
  Sender: FDA-Public Use
  Company Number: JP-AMGEN-JPNSP2021095966

PATIENT
  Age: 76 Year
  Sex: Female
  Weight: 48 kg

DRUGS (10)
  1. FAMOTIDINE. [Concomitant]
     Active Substance: FAMOTIDINE
     Indication: CHRONIC GASTRITIS
     Dosage: 20 MILLIGRAM, QD
  2. ALFACALCIDOL [Concomitant]
     Active Substance: ALFACALCIDOL
     Indication: OSTEOPOROSIS
     Dosage: 0.5 MICROGRAM, QD
     Dates: start: 20210510
  3. EVENITY [Suspect]
     Active Substance: ROMOSOZUMAB-AQQG
     Indication: OSTEOPOROSIS
     Dosage: 105 MILLIGRAM
     Route: 058
     Dates: start: 20210510, end: 20210608
  4. LOXOPROFEN NA [Concomitant]
     Active Substance: LOXOPROFEN SODIUM
     Dosage: 100 MILLIGRAM, QD
     Dates: start: 20210510, end: 20210608
  5. REBAMIPIDE [Concomitant]
     Active Substance: REBAMIPIDE
     Indication: COMPRESSION FRACTURE
     Dosage: 50 MILLIGRAM, BID
     Dates: start: 20210510, end: 20210608
  6. LOXOPROFEN NA [Concomitant]
     Active Substance: LOXOPROFEN SODIUM
     Indication: COMPRESSION FRACTURE
     Dosage: 30 MILLIGRAM, BID
     Dates: start: 20210510, end: 20210608
  7. DONEPEZIL HYDROCHLORIDE. [Concomitant]
     Active Substance: DONEPEZIL HYDROCHLORIDE
     Dosage: 5 MILLIGRAM, QD
  8. AMLODIPINE [Concomitant]
     Active Substance: AMLODIPINE BESYLATE
     Indication: HYPERTENSION
     Dosage: 5 MILLIGRAM, QD
  9. DONEPEZIL HYDROCHLORIDE. [Concomitant]
     Active Substance: DONEPEZIL HYDROCHLORIDE
     Indication: DEMENTIA ALZHEIMER^S TYPE
     Dosage: 3 MILLIGRAM, QD
     Dates: start: 20191202
  10. AZILVA [Concomitant]
     Active Substance: AZILSARTAN KAMEDOXOMIL
     Indication: HYPERTENSION
     Dosage: 20 MILLIGRAM, QD

REACTIONS (2)
  - Osteonecrosis of jaw [Unknown]
  - Periodontitis [Recovering/Resolving]

NARRATIVE: CASE EVENT DATE: 2021
